FAERS Safety Report 19132691 (Version 3)
Quarter: 2021Q2

REPORT INFORMATION
  Report Type: Spontaneous
  Country: US (occurrence: US)
  Receive Date: 20210414
  Receipt Date: 20210527
  Transmission Date: 20210717
  Serious: Yes (Hospitalization, Other)
  Sender: FDA-Public Use
  Company Number: US-009507513-2104USA002538

PATIENT
  Sex: Female
  Weight: 114.74 kg

DRUGS (1)
  1. JANUMET [Suspect]
     Active Substance: METFORMIN HYDROCHLORIDE\SITAGLIPTIN PHOSPHATE
     Indication: DIABETES MELLITUS
     Dosage: 50/500 MG,ORALLY TWICE PER DAY(ONCE IN THE MORNING AND ONCE AT BED TIME)
     Route: 048

REACTIONS (4)
  - Pruritus [Recovering/Resolving]
  - Product dose omission issue [Unknown]
  - Fall [Recovering/Resolving]
  - Femur fracture [Recovering/Resolving]

NARRATIVE: CASE EVENT DATE: 2020
